FAERS Safety Report 6901278-2 (Version None)
Quarter: 2010Q3

REPORT INFORMATION
  Report Type: 
  Country: None (occurrence: None)
  Receive Date: 20100708
  Receipt Date: 20100213
  Transmission Date: 20110219
  Serious: Yes (Other)
  Sender: FDA-Public Use
  Company Number: 2010019267

PATIENT
  Age: 52 Year
  Sex: Male
  Weight: 122 kg

DRUGS (4)
  1. CHANTIX [Suspect]
     Indication: SMOKING CESSATION THERAPY
     Dosage: 2 BLUE PILLS, ORAL : 1 MG, 2X/DAY
     Route: 048
     Dates: end: 20100212
  2. CHANTIX [Suspect]
     Indication: SMOKING CESSATION THERAPY
     Dosage: 2 BLUE PILLS, ORAL : 1 MG, 2X/DAY
     Route: 048
     Dates: start: 20100208
  3. TOPROL-XL [Concomitant]
  4. LITHIUM CARBONATE [Concomitant]

REACTIONS (1)
  - PALPITATIONS [None]
